FAERS Safety Report 11645650 (Version 1)
Quarter: 2015Q4

REPORT INFORMATION
  Report Type: Spontaneous
  Country: US (occurrence: US)
  Receive Date: 20151020
  Receipt Date: 20151020
  Transmission Date: 20160304
  Serious: No
  Sender: FDA-Public Use
  Company Number: US-ENDO PHARMACEUTICALS INC.-2015-001561

PATIENT
  Sex: Female
  Weight: 44.95 kg

DRUGS (3)
  1. CARISOPRODOL TABLETS 350MG [Suspect]
     Active Substance: CARISOPRODOL
     Indication: MUSCLE SPASMS
     Route: 048
     Dates: start: 1999
  2. LIDOCAINE PATCH 5% [Concomitant]
     Active Substance: LIDOCAINE
     Indication: NECK PAIN
  3. LIDOCAINE PATCH 5% [Concomitant]
     Active Substance: LIDOCAINE
     Indication: BACK PAIN

REACTIONS (5)
  - Coeliac disease [Not Recovered/Not Resolved]
  - Product use issue [Not Recovered/Not Resolved]
  - Incorrect drug administration duration [Not Recovered/Not Resolved]
  - Uterine polyp [Recovered/Resolved]
  - Arthritis [Not Recovered/Not Resolved]

NARRATIVE: CASE EVENT DATE: 1999
